FAERS Safety Report 15516674 (Version 1)
Quarter: 2018Q4

REPORT INFORMATION
  Report Type: Spontaneous
  Country: US (occurrence: US)
  Receive Date: 20181011
  Receipt Date: 20181011
  Transmission Date: 20190205
  Serious: Yes (Hospitalization)
  Sender: FDA-Public Use
  Company Number: None

PATIENT
  Age: 71 Year
  Sex: Female

DRUGS (10)
  1. BONIVA [Concomitant]
     Active Substance: IBANDRONATE SODIUM
  2. VITAMINC [Concomitant]
  3. ORENCIA [Concomitant]
     Active Substance: ABATACEPT
  4. METHOTREXATE 50MG/2ML SDV [Suspect]
     Active Substance: METHOTREXATE
     Indication: RHEUMATOID ARTHRITIS
     Route: 058
     Dates: start: 20140516
  5. ATENOLOL. [Concomitant]
     Active Substance: ATENOLOL
  6. NAPROXEN. [Concomitant]
     Active Substance: NAPROXEN
  7. LEFLUNOMIDE 20MG TABLET [Suspect]
     Active Substance: LEFLUNOMIDE
     Indication: RHEUMATOID ARTHRITIS
     Route: 048
     Dates: start: 20180216
  8. L-METHYFOLA [Concomitant]
  9. RANIRIDINE [Concomitant]
  10. VITAMIN D [Concomitant]
     Active Substance: CHOLECALCIFEROL

REACTIONS (1)
  - Wrist fracture [None]

NARRATIVE: CASE EVENT DATE: 201809
